FAERS Safety Report 24532738 (Version 1)
Quarter: 2024Q4

REPORT INFORMATION
  Report Type: Spontaneous
  Country: IL (occurrence: IL)
  Receive Date: 20241022
  Receipt Date: 20241022
  Transmission Date: 20250114
  Serious: Yes (Other)
  Sender: TEVA
  Company Number: IL-TEVA-VS-3254906

PATIENT
  Age: 71 Year
  Sex: Male

DRUGS (5)
  1. DEXTROAMPHETAMINE SACCHARATE, AMPHETAMINE ASPARTATE, DEXTROAMPHETAMINE [Suspect]
     Active Substance: DEXTROAMPHETAMINE SACCHARATE, AMPHETAMINE ASPARTATE, DEXTROAMPHETAMINE SULFATE AND AMPHETAMINE SULFA
     Indication: Attention deficit hyperactivity disorder
     Route: 065
  2. Miro [Concomitant]
     Indication: Product used for unknown indication
     Route: 065
  3. EZECOR? [Concomitant]
     Indication: Product used for unknown indication
     Route: 065
  4. CRESTOR? [Concomitant]
     Indication: Product used for unknown indication
     Route: 065
  5. MELATONIN [Concomitant]
     Active Substance: MELATONIN
     Indication: Product used for unknown indication
     Route: 065

REACTIONS (2)
  - Microangiopathy [Unknown]
  - Vascular injury [Unknown]
